FAERS Safety Report 6568956-9 (Version None)
Quarter: 2010Q1

REPORT INFORMATION
  Report Type: 
  Country: None (occurrence: None)
  Receive Date: 20100201
  Receipt Date: 20100201
  Transmission Date: 20100710
  Serious: Yes (Other)
  Sender: FDA-Public Use
  Company Number: None

PATIENT
  Age: 57 Year
  Sex: Male
  Weight: 106 kg

DRUGS (1)
  1. ROCURONIUM BROMIDE [Suspect]
     Indication: GENERAL ANAESTHESIA
     Dosage: 30 MG X 1 IV @ 1345 5MG X 1 IV 1445
     Route: 042
     Dates: start: 20000129

REACTIONS (1)
  - NEUROMUSCULAR BLOCK PROLONGED [None]
